FAERS Safety Report 14527554 (Version 3)
Quarter: 2018Q1

REPORT INFORMATION
  Report Type: Report from Study
  Country: US (occurrence: US)
  Receive Date: 20180213
  Receipt Date: 20180223
  Transmission Date: 20180509
  Serious: Yes (Death, Other)
  Sender: FDA-Public Use
  Company Number: US-PFIZER INC-2018063217

PATIENT
  Age: 81 Year
  Sex: Male
  Weight: 57 kg

DRUGS (1)
  1. DALTEPARIN SODIUM [Suspect]
     Active Substance: DALTEPARIN SODIUM
     Indication: VENA CAVA THROMBOSIS
     Dosage: 7500 IU, DAILY
     Route: 058
     Dates: start: 20170707, end: 20180104

REACTIONS (1)
  - Malignant neoplasm progression [Fatal]
